FAERS Safety Report 6162140-9 (Version None)
Quarter: 2009Q2

REPORT INFORMATION
  Report Type: 
  Country: None (occurrence: None)
  Receive Date: 20090421
  Receipt Date: 20090408
  Transmission Date: 20091009
  Serious: Yes (Other)
  Sender: FDA-Public Use
  Company Number: US-PFIZER INC-2006088302

PATIENT
  Sex: Female

DRUGS (10)
  1. PROVERA [Suspect]
     Indication: HOT FLUSH
     Dosage: UNK
     Route: 048
     Dates: start: 19860101, end: 19981201
  2. PROVERA [Suspect]
     Indication: MENOPAUSAL SYMPTOMS
  3. MEDROXYPROGESTERONE AND MEDROXYPROGESTERONE ACETATE [Suspect]
     Indication: HOT FLUSH
     Dosage: UNK
     Dates: start: 19860101, end: 19981201
  4. MEDROXYPROGESTERONE AND MEDROXYPROGESTERONE ACETATE [Suspect]
     Indication: MENOPAUSAL SYMPTOMS
  5. PREMARIN [Suspect]
     Indication: HOT FLUSH
     Dosage: UNK
     Route: 065
     Dates: start: 19860101, end: 19911101
  6. PREMARIN [Suspect]
     Indication: MENOPAUSAL SYMPTOMS
  7. PREMPRO [Suspect]
     Indication: HOT FLUSH
     Dosage: UNK
     Route: 065
     Dates: start: 19950901, end: 19981201
  8. PREMPRO [Suspect]
     Indication: MENOPAUSAL SYMPTOMS
  9. CYCRIN [Suspect]
     Indication: HOT FLUSH
     Dosage: UNK
     Route: 065
     Dates: start: 19901201, end: 19950801
  10. CYCRIN [Suspect]
     Indication: MENOPAUSAL SYMPTOMS

REACTIONS (1)
  - BREAST CANCER FEMALE [None]
